FAERS Safety Report 6823682-3 (Version None)
Quarter: 2010Q3

REPORT INFORMATION
  Report Type: 
  Country: None (occurrence: None)
  Receive Date: 20100708
  Receipt Date: 20060821
  Transmission Date: 20110219
  Serious: No
  Sender: FDA-Public Use
  Company Number: US-PFIZER INC-2006102790

PATIENT
  Sex: Male
  Weight: 68.95 kg

DRUGS (14)
  1. CHANTIX [Suspect]
     Indication: SMOKING CESSATION THERAPY
     Route: 048
     Dates: start: 20060801
  2. NORVASC [Concomitant]
     Route: 048
  3. TOPROL-XL [Concomitant]
     Route: 048
  4. PREVACID [Concomitant]
     Route: 048
  5. SINGULAIR [Concomitant]
     Route: 048
  6. PLETAL [Concomitant]
     Route: 048
  7. NEURONTIN [Concomitant]
     Route: 048
  8. CARBAMAZEPINE [Concomitant]
     Route: 048
  9. METHADONE [Concomitant]
     Route: 048
  10. HYDROCODONE BITARTRATE [Concomitant]
     Dosage: AS NEEDED
     Route: 048
  11. ADVAIR DISKUS 100/50 [Concomitant]
     Route: 048
  12. COMBIVENT [Concomitant]
     Route: 048
  13. FOLIC ACID [Concomitant]
     Route: 048
  14. VITAMIN E [Concomitant]
     Route: 048

REACTIONS (1)
  - NERVOUSNESS [None]
